FAERS Safety Report 9174755 (Version 2)
Quarter: 2013Q1

REPORT INFORMATION
  Report Type: Report from Study
  Country: CH (occurrence: CH)
  Receive Date: 20130320
  Receipt Date: 20130326
  Transmission Date: 20140127
  Serious: Yes (Congenital Anomaly)
  Sender: FDA-Public Use
  Company Number: CH-PFIZER INC-2013089167

PATIENT
  Sex: 0

DRUGS (1)
  1. ATORVASTATIN CALCIUM [Suspect]
     Dosage: 10-80 MG, DAILY
     Route: 064

REACTIONS (2)
  - Maternal exposure during pregnancy [Unknown]
  - Haemangioma of skin [Unknown]
